FAERS Safety Report 9619375 (Version 9)
Quarter: 2014Q1

REPORT INFORMATION
  Report Type: Report from Study
  Country: DE (occurrence: DE)
  Receive Date: 20131014
  Receipt Date: 20140331
  Transmission Date: 20141002
  Serious: Yes (Hospitalization)
  Sender: FDA-Public Use
  Company Number: DE-ROCHE-1286212

PATIENT
  Age: 52 Year
  Sex: Female
  Weight: 56 kg

DRUGS (3)
  1. TRASTUZUMAB EMTANSINE [Suspect]
     Indication: BREAST CANCER METASTATIC
     Dosage: LAST DOSE PRIOR TO HEMOPTYSIS (201.6MG): 25/SEP/2013.
     Route: 042
     Dates: start: 20130626, end: 20131010
  2. L-THYROXINE [Concomitant]
     Route: 065
     Dates: start: 200708
  3. NEXIUM [Concomitant]
     Route: 065
     Dates: start: 201304

REACTIONS (1)
  - Haemoptysis [Recovered/Resolved]
